FAERS Safety Report 13067781 (Version 1)
Quarter: 2016Q4

REPORT INFORMATION
  Report Type: Other
  Country: CA (occurrence: CA)
  Receive Date: 20161228
  Receipt Date: 20161228
  Transmission Date: 20170207
  Serious: Yes (Death)
  Sender: FDA-Public Use
  Company Number: CA-APOTEX-2016AP015918

PATIENT
  Age: 40 Year
  Sex: Female

DRUGS (1)
  1. APO-LEVETIRACETAM [Suspect]
     Active Substance: LEVETIRACETAM
     Indication: EPILEPSY
     Dosage: 500 MG, BID
     Route: 065

REACTIONS (3)
  - Anticonvulsant drug level below therapeutic [Fatal]
  - Cardiac arrest [Fatal]
  - Sudden unexplained death in epilepsy [Fatal]
